FAERS Safety Report 25231731 (Version 1)
Quarter: 2025Q2

REPORT INFORMATION
  Report Type: Spontaneous
  Country: US (occurrence: US)
  Receive Date: 20250423
  Receipt Date: 20250423
  Transmission Date: 20250716
  Serious: Yes (Other)
  Sender: PFIZER
  Company Number: US-PFIZER INC-202500084031

PATIENT
  Age: 79 Year
  Sex: Female

DRUGS (2)
  1. LORBRENA [Suspect]
     Active Substance: LORLATINIB
     Indication: Bone neoplasm
     Dosage: 100 MG; TAKE ONE DAILY.
  2. LORBRENA [Suspect]
     Active Substance: LORLATINIB
     Indication: Bronchial carcinoma

REACTIONS (2)
  - Metastases to lung [Unknown]
  - Malignant neoplasm progression [Unknown]
